FAERS Safety Report 5497461-6 (Version None)
Quarter: 2007Q4

REPORT INFORMATION
  Report Type: 
  Country: None (occurrence: None)
  Receive Date: 20071025
  Receipt Date: 20061117
  Transmission Date: 20080405
  Serious: No
  Sender: FDA-Public Use
  Company Number: A0627936A

PATIENT
  Age: 65 Year
  Sex: Male

DRUGS (3)
  1. ADVAIR DISKUS 100/50 [Suspect]
     Indication: ASTHMA
     Dosage: 1PUFF TWICE PER DAY
     Route: 055
     Dates: start: 20061105, end: 20061115
  2. NORVASC [Concomitant]
  3. ACCOLATE [Concomitant]

REACTIONS (1)
  - DRUG INEFFECTIVE [None]
